FAERS Safety Report 7882222-0 (Version None)
Quarter: 2011Q4

REPORT INFORMATION
  Report Type: 
  Country: None (occurrence: None)
  Receive Date: 20111101
  Receipt Date: 20110610
  Transmission Date: 20120403
  Serious: No
  Sender: FDA-Public Use
  Company Number: US-AMGEN-USASP2011030116

PATIENT
  Age: 71 Year
  Sex: Female

DRUGS (6)
  1. LORAZEPAM [Concomitant]
  2. OXYCONTIN [Concomitant]
  3. SYNTHROID [Concomitant]
  4. OXYCODONE HCL [Concomitant]
  5. ENBREL [Suspect]
     Indication: RHEUMATOID ARTHRITIS
     Dates: start: 20100901
  6. CIPROFLOXACIN [Concomitant]
     Dosage: UNK
     Dates: start: 20110608

REACTIONS (2)
  - BLISTER [None]
  - ANTIBIOTIC THERAPY [None]
